FAERS Safety Report 18335409 (Version 1)
Quarter: 2020Q4

REPORT INFORMATION
  Report Type: Spontaneous
  Country: US (occurrence: US)
  Receive Date: 20201001
  Receipt Date: 20201001
  Transmission Date: 20210113
  Serious: Yes (Other)
  Sender: FDA-Public Use
  Company Number: US-009507513-2009USA011021

PATIENT
  Sex: Male

DRUGS (3)
  1. LENVATINIB MESYLATE [Suspect]
     Active Substance: LENVATINIB MESYLATE
     Indication: THYROID CANCER METASTATIC
     Dosage: 24 MILLIGRAM, UNK
     Dates: start: 2018, end: 202009
  2. KEYTRUDA [Suspect]
     Active Substance: PEMBROLIZUMAB
     Indication: THYROID CANCER METASTATIC
     Dosage: UNK
     Dates: start: 202002
  3. LENVATINIB MESYLATE [Suspect]
     Active Substance: LENVATINIB MESYLATE
     Dosage: 20 MILLIGRAM, ONCE DAILY
     Dates: start: 202009

REACTIONS (3)
  - Weight decreased [Unknown]
  - Malignant neoplasm progression [Unknown]
  - Scan abnormal [Unknown]

NARRATIVE: CASE EVENT DATE: 2020
